FAERS Safety Report 8011589-8 (Version None)
Quarter: 2011Q4

REPORT INFORMATION
  Report Type: 
  Country: None (occurrence: None)
  Receive Date: 20111228
  Receipt Date: 20111219
  Transmission Date: 20120403
  Serious: Yes (Congenital Anomaly)
  Sender: FDA-Public Use
  Company Number: DE-ARROW GEN-2011-21853

PATIENT
  Sex: Male
  Weight: 3.43 kg

DRUGS (9)
  1. JODID [Concomitant]
     Indication: HYPOTHYROIDISM
     Dosage: 150 MG, DAILY
     Route: 064
  2. FOLIC ACID [Concomitant]
     Indication: PROPHYLAXIS OF NEURAL TUBE DEFECT
     Dosage: 0.5 MG, DAILY
     Route: 064
     Dates: start: 20100822
  3. LEVOTHYROXINE SODIUM [Concomitant]
     Dosage: 88 MCG, DAILY
     Route: 064
     Dates: start: 20100822
  4. FLU-IMUNE [Concomitant]
     Indication: IMMUNISATION
     Dosage: UNK
     Route: 064
  5. LEVOTHYROXINE SODIUM [Concomitant]
     Indication: HYPOTHYROIDISM
     Dosage: 112 MCG, DAILY
     Route: 064
     Dates: end: 20110610
  6. PROTHYRID [Concomitant]
     Dosage: 0.05 MG, DAILY
     Route: 064
     Dates: start: 20100822, end: 20110610
  7. LEVOTHYROXINE SODIUM [Concomitant]
     Dosage: 100 MCG, DAILY
     Route: 064
  8. LOCABIOSOL [Concomitant]
     Indication: COUGH
     Dosage: 3 X 2 SPRAY APPLICATIONS, DAILY
     Route: 064
  9. TOPIRAMATE [Suspect]
     Indication: EPILEPSY
     Dosage: 100-0-150 MG, DAILY
     Route: 064
     Dates: start: 20100822, end: 20110610

REACTIONS (1)
  - HYPOSPADIAS [None]
